FAERS Safety Report 19552159 (Version 1)
Quarter: 2021Q3

REPORT INFORMATION
  Report Type: Spontaneous
  Country: FR (occurrence: FR)
  Receive Date: 20210714
  Receipt Date: 20210714
  Transmission Date: 20211014
  Serious: Yes (Hospitalization)
  Sender: FDA-Public Use
  Company Number: NVSC2021FR151100

PATIENT
  Age: 83 Year
  Sex: Male
  Weight: 71 kg

DRUGS (2)
  1. ISONIAZIDE [Suspect]
     Active Substance: ISONIAZID
     Indication: CYSTITIS NONINFECTIVE
     Dosage: 150 MG, QD (150 MG PAR JOUR)
     Route: 048
     Dates: start: 20210506, end: 20210608
  2. RIFAMPICIN [Suspect]
     Active Substance: RIFAMPIN
     Indication: CYSTITIS NONINFECTIVE
     Dosage: 600 MG, QD (600 MG PAR JOUR)
     Route: 048
     Dates: start: 20210506

REACTIONS (2)
  - Condition aggravated [Not Recovered/Not Resolved]
  - Hepatic cytolysis [Not Recovered/Not Resolved]

NARRATIVE: CASE EVENT DATE: 20210510
